FAERS Safety Report 4875635-2 (Version None)
Quarter: 2005Q4

REPORT INFORMATION
  Report Type: 
  Country: None (occurrence: None)
  Receive Date: 20051223
  Receipt Date: 20050912
  Transmission Date: 20060501
  Serious: Yes (Death)
  Sender: FDA-Public Use
  Company Number: 05P-163-0304852-00

PATIENT
  Age: 89 Year
  Sex: Female

DRUGS (5)
  1. HUMIRA [Suspect]
     Indication: RHEUMATOID ARTHRITIS
     Dosage: 40 MG, 1 IN 2 WK, SUBCUTANEOUS
     Route: 058
  2. DONEPEZIL HYDROCHLORIDE [Concomitant]
  3. VENLAFAXINE HCL [Concomitant]
  4. MIRTAZAPINE [Concomitant]
  5. DIAZIDE [Concomitant]

REACTIONS (1)
  - DEATH [None]
